FAERS Safety Report 11465433 (Version 2)
Quarter: 2015Q3

REPORT INFORMATION
  Report Type: Report from Study
  Country: IN (occurrence: IN)
  Receive Date: 20150907
  Receipt Date: 20150914
  Transmission Date: 20151125
  Serious: Yes (Death, Other)
  Sender: FDA-Public Use
  Company Number: IN-BRISTOL-MYERS SQUIBB COMPANY-BMS-2015-058341

PATIENT
  Age: 26 Year
  Sex: Female

DRUGS (1)
  1. ENTECAVIR. [Suspect]
     Active Substance: ENTECAVIR
     Indication: HEPATITIS B
     Dosage: 0.5 MG, QD
     Route: 048
     Dates: start: 20140924, end: 20150329

REACTIONS (2)
  - Jaundice [Fatal]
  - Hepatitis B [Fatal]

NARRATIVE: CASE EVENT DATE: 20150330
